FAERS Safety Report 12676942 (Version 1)
Quarter: 2016Q3

REPORT INFORMATION
  Report Type: Spontaneous
  Country: US (occurrence: US)
  Receive Date: 20160823
  Receipt Date: 20160823
  Transmission Date: 20161109
  Serious: No
  Sender: FDA-Public Use
  Company Number: US-TEVA-598333USA

PATIENT
  Age: 93 Year
  Sex: Female
  Weight: 44.04 kg

DRUGS (2)
  1. CLONIDINE. [Suspect]
     Active Substance: CLONIDINE
     Route: 062
     Dates: start: 20150916
  2. CLONIDINE. [Suspect]
     Active Substance: CLONIDINE
     Dosage: 0.1 MG / DAY
     Route: 062

REACTIONS (6)
  - Product adhesion issue [Unknown]
  - Application site vesicles [Unknown]
  - Application site rash [Unknown]
  - Laceration [Unknown]
  - Application site erythema [Unknown]
  - Application site pruritus [Unknown]
